FAERS Safety Report 5712845-6 (Version None)
Quarter: 2008Q2

REPORT INFORMATION
  Report Type: 
  Country: None (occurrence: None)
  Receive Date: 20080422
  Receipt Date: 20080414
  Transmission Date: 20081010
  Serious: Yes (Other)
  Sender: FDA-Public Use
  Company Number: B0360211A

PATIENT
  Age: 24 Year
  Sex: Female

DRUGS (3)
  1. PAROXETINE HCL [Suspect]
     Indication: DEPRESSION
     Dosage: 20MG PER DAY
     Route: 065
     Dates: start: 19991119
  2. PAROXETINE HCL [Suspect]
     Route: 048
     Dates: start: 20050101
  3. MICROGYNON [Concomitant]

REACTIONS (23)
  - AGGRESSION [None]
  - AGITATION [None]
  - ANGER [None]
  - DEPRESSION [None]
  - DIZZINESS [None]
  - DYSPHEMIA [None]
  - DYSSOMNIA [None]
  - EMOTIONAL DISORDER [None]
  - FEAR [None]
  - FORMICATION [None]
  - HYPOAESTHESIA [None]
  - IRRITABILITY [None]
  - MAJOR DEPRESSION [None]
  - MOOD SWINGS [None]
  - NERVOUSNESS [None]
  - PARAESTHESIA [None]
  - SKIN IRRITATION [None]
  - SLEEP DISORDER [None]
  - STRESS [None]
  - SUICIDAL IDEATION [None]
  - TREMOR [None]
  - VISION BLURRED [None]
  - WITHDRAWAL SYNDROME [None]
